FAERS Safety Report 13707657 (Version 2)
Quarter: 2017Q3

REPORT INFORMATION
  Report Type: Spontaneous
  Country: JP (occurrence: JP)
  Receive Date: 20170630
  Receipt Date: 20170710
  Transmission Date: 20171127
  Serious: Yes (Hospitalization, Other)
  Sender: FDA-Public Use
  Company Number: JP-PFIZER INC-2017284203

PATIENT
  Age: 50 Year
  Sex: Male

DRUGS (9)
  1. ALLOPURINOL. [Concomitant]
     Active Substance: ALLOPURINOL
     Dosage: UNK
     Dates: start: 20150827, end: 20160419
  2. SEIBULE [Suspect]
     Active Substance: MIGLITOL
     Indication: DIABETES MELLITUS
     Dosage: 50 MG, 3X/DAY
     Route: 048
     Dates: start: 20160414, end: 20160419
  3. SEIBULE [Suspect]
     Active Substance: MIGLITOL
     Indication: HYPERGLYCAEMIA
  4. CLARITHROMYCIN. [Suspect]
     Active Substance: CLARITHROMYCIN
     Indication: HELICOBACTER INFECTION
     Dosage: 400 MG, 2X/DAY
     Route: 048
     Dates: start: 20160416, end: 20160418
  5. PASETOCIN [Suspect]
     Active Substance: AMOXICILLIN
     Indication: HELICOBACTER INFECTION
     Dosage: 750 MG, 2X/DAY
     Route: 048
     Dates: start: 20160416, end: 20160418
  6. NESINA [Concomitant]
     Active Substance: ALOGLIPTIN BENZOATE
     Dosage: UNK
     Dates: start: 20140904, end: 20160419
  7. DIOVAN [Concomitant]
     Active Substance: VALSARTAN
     Dosage: UNK
     Dates: start: 20120510, end: 20160419
  8. TAKECAB [Suspect]
     Active Substance: VONOPRAZAN FUMURATE
     Indication: HELICOBACTER INFECTION
     Dosage: 20 MG, 2X/DAY
     Route: 048
     Dates: start: 20160416, end: 20160418
  9. TRICOR [Concomitant]
     Active Substance: FENOFIBRATE
     Dosage: UNK
     Dates: start: 20110609, end: 20160419

REACTIONS (1)
  - Drug eruption [Recovered/Resolved]

NARRATIVE: CASE EVENT DATE: 20160417
